FAERS Safety Report 19283523 (Version 2)
Quarter: 2021Q2

REPORT INFORMATION
  Report Type: Report from Study
  Country: US (occurrence: US)
  Receive Date: 20210520
  Receipt Date: 20210602
  Transmission Date: 20210717
  Serious: Yes (Hospitalization)
  Sender: FDA-Public Use
  Company Number: US-ASTRAZENECA-2021A321788

PATIENT
  Age: 24357 Day
  Sex: Female
  Weight: 62.1 kg

DRUGS (2)
  1. SYNTHROID [Concomitant]
     Active Substance: LEVOTHYROXINE SODIUM
     Indication: TOXIC NODULAR GOITRE
  2. FASENRA [Suspect]
     Active Substance: BENRALIZUMAB
     Indication: ASTHMA
     Route: 058
     Dates: start: 20210217, end: 20210413

REACTIONS (8)
  - Nausea [Recovered/Resolved]
  - Dehydration [Unknown]
  - Vomiting [Recovered/Resolved]
  - Wheezing [Unknown]
  - Headache [Recovered/Resolved]
  - Food intolerance [Unknown]
  - Abdominal discomfort [Unknown]
  - SARS-CoV-2 test negative [Unknown]

NARRATIVE: CASE EVENT DATE: 20210318
